FAERS Safety Report 4339198-2 (Version None)
Quarter: 2004Q2

REPORT INFORMATION
  Report Type: 
  Country: None (occurrence: None)
  Receive Date: 20040415
  Receipt Date: 20030306
  Transmission Date: 20050107
  Serious: Yes (Death, Hospitalization)
  Sender: FDA-Public Use
  Company Number: PHHO2003DE03155

PATIENT
  Age: 59 Year
  Sex: Female
  Weight: 59 kg

DRUGS (5)
  1. ERL 080A [Suspect]
     Indication: HEART TRANSPLANT
     Dosage: 1080 MG, QD
     Route: 048
     Dates: start: 20040307, end: 20040307
  2. ERL 080A [Suspect]
     Dosage: 1080 MG, QD
     Route: 048
     Dates: start: 20040310, end: 20040310
  3. ERL 080A [Suspect]
     Dosage: 1080 MG, BID
     Route: 048
     Dates: start: 20020622, end: 20030306
  4. NEORAL [Suspect]
     Indication: HEART TRANSPLANT
     Dosage: 125 MG, BID
     Route: 048
     Dates: start: 20020622, end: 20030305
  5. PREDNISOLONE [Suspect]
     Indication: HEART TRANSPLANT
     Dosage: 5 MG, BID
     Route: 048
     Dates: start: 20020622, end: 20030326

REACTIONS (20)
  - ALPHA HAEMOLYTIC STREPTOCOCCAL INFECTION [None]
  - ASPERGILLOSIS [None]
  - CANDIDIASIS [None]
  - DYSPNOEA EXERTIONAL [None]
  - ESCHERICHIA INFECTION [None]
  - FUNGAL INFECTION [None]
  - HAEMODIALYSIS [None]
  - HAEMODYNAMIC INSTABILITY [None]
  - HYPERCAPNIA [None]
  - LUNG DISORDER [None]
  - METABOLIC ACIDOSIS [None]
  - PNEUMOCYSTIS CARINII INFECTION [None]
  - PNEUMONIA [None]
  - PYREXIA [None]
  - RENAL FAILURE [None]
  - RENAL TUBULAR ACIDOSIS [None]
  - RESPIRATORY FAILURE [None]
  - RESPIRATORY GAS EXCHANGE DISORDER [None]
  - SEPSIS [None]
  - SHOCK [None]
